FAERS Safety Report 12385042 (Version 2)
Quarter: 2016Q2

REPORT INFORMATION
  Report Type: Report from Study
  Country: CA (occurrence: CA)
  Receive Date: 20160519
  Receipt Date: 20160617
  Transmission Date: 20160815
  Serious: Yes (Death, Hospitalization)
  Sender: FDA-Public Use
  Company Number: CA-HLSUS-2016-CA-000145

PATIENT
  Age: 68 Year
  Sex: Male
  Weight: 62.4 kg

DRUGS (10)
  1. FERROUS FUMARATE [Concomitant]
     Active Substance: FERROUS FUMARATE
     Indication: ANAEMIA
     Dosage: 300 MG QD
     Route: 048
     Dates: end: 20160311
  2. METFORMIN [Concomitant]
     Active Substance: METFORMIN HYDROCHLORIDE
     Indication: ARTHRITIS
     Dosage: 500 MG BID
     Route: 048
     Dates: end: 20160311
  3. ATORVASTATIN [Concomitant]
     Active Substance: ATORVASTATIN
     Indication: DYSLIPIDAEMIA
     Dosage: 80 MG QHS
     Route: 048
     Dates: end: 20160311
  4. CLOPIDOGREL [Concomitant]
     Active Substance: CLOPIDOGREL BISULFATE
     Indication: CEREBROVASCULAR ACCIDENT
     Dosage: 75 MG QD
     Route: 048
     Dates: end: 20160311
  5. MULTIVITAMIN [Concomitant]
     Active Substance: VITAMINS
     Indication: DIABETES MELLITUS
     Route: 048
     Dates: end: 20160311
  6. PANTOPRAZOLE [Concomitant]
     Active Substance: PANTOPRAZOLE SODIUM
     Indication: DYSPHAGIA
     Dosage: 40 MG QD
     Route: 048
     Dates: end: 20160311
  7. CLOZARIL [Suspect]
     Active Substance: CLOZAPINE
     Indication: SCHIZOPHRENIA
     Dosage: 200 MG QAM + 500 MG QHS
     Route: 048
     Dates: end: 20160311
  8. HYDROXYCHLOROQUINE [Concomitant]
     Active Substance: HYDROXYCHLOROQUINE
     Indication: RHEUMATOID ARTHRITIS
     Dosage: 400 MG QD
     Route: 048
     Dates: end: 20160311
  9. TRAZODONE [Concomitant]
     Active Substance: TRAZODONE HYDROCHLORIDE
     Indication: SLEEP DISORDER
     Dosage: 50 MG QHS
     Route: 048
     Dates: end: 20160311
  10. VITAMIN B12 [Concomitant]
     Active Substance: CYANOCOBALAMIN
     Indication: VITAMIN B12 DEFICIENCY
     Dosage: 1000 MCG QD
     Route: 048
     Dates: end: 20160311

REACTIONS (8)
  - Fall [Unknown]
  - Cardiac arrest [Fatal]
  - Intestinal obstruction [Unknown]
  - Pneumonia aspiration [Unknown]
  - Failure to thrive [Unknown]
  - Clostridial infection [Unknown]
  - Urosepsis [Unknown]
  - Circulatory collapse [Fatal]

NARRATIVE: CASE EVENT DATE: 201512
